FAERS Safety Report 4794481-1 (Version None)
Quarter: 2005Q4

REPORT INFORMATION
  Report Type: 
  Country: None (occurrence: None)
  Receive Date: 20051011
  Receipt Date: 20050930
  Transmission Date: 20060501
  Serious: Yes (Hospitalization)
  Sender: FDA-Public Use
  Company Number: 200518765GDDC

PATIENT
  Sex: 0

DRUGS (1)
  1. KETEK [Suspect]
     Route: 048
     Dates: start: 20050701, end: 20050701

REACTIONS (1)
  - FACIAL PALSY [None]
